FAERS Safety Report 4314141-0 (Version None)
Quarter: 2004Q1

REPORT INFORMATION
  Report Type: 
  Country: None (occurrence: None)
  Receive Date: 20040308
  Receipt Date: 20040308
  Transmission Date: 20041129
  Serious: No
  Sender: FDA-Public Use
  Company Number: None

PATIENT
  Age: 16 Year
  Sex: Female
  Weight: 73.4827 kg

DRUGS (1)
  1. DEPO-PROVERA [Suspect]
     Dosage: EVERY 3 MONTHS

REACTIONS (3)
  - INFERTILITY [None]
  - STRESS SYMPTOMS [None]
  - WEIGHT INCREASED [None]
